FAERS Safety Report 20480569 (Version 1)
Quarter: 2022Q1

REPORT INFORMATION
  Report Type: Spontaneous
  Country: US (occurrence: None)
  Receive Date: 20220216
  Receipt Date: 20220216
  Transmission Date: 20220423
  Serious: Yes (Disabling)
  Sender: FDA-Public Use
  Company Number: None

PATIENT
  Age: 52 Year
  Sex: Female
  Weight: 84.6 kg

DRUGS (8)
  1. AIMOVIG [Suspect]
     Active Substance: ERENUMAB-AOOE
     Indication: Migraine
     Dosage: OTHER QUANTITY : 1 INJECTION(S);?OTHER FREQUENCY : 1 TIME/MONTH;?
     Route: 058
     Dates: start: 202202
  2. GABAPENTIN [Concomitant]
     Active Substance: GABAPENTIN
  3. NABUMETONE [Concomitant]
     Active Substance: NABUMETONE
  4. PRAZOSIN [Concomitant]
     Active Substance: PRAZOSIN
  5. FLEXERIL [Concomitant]
  6. RIZATRIPTAN [Concomitant]
  7. AIMOVIG [Concomitant]
     Active Substance: ERENUMAB-AOOE
  8. BUSPAR [Concomitant]

REACTIONS (1)
  - Constipation [None]

NARRATIVE: CASE EVENT DATE: 20210213
